FAERS Safety Report 19173035 (Version 1)
Quarter: 2021Q2

REPORT INFORMATION
  Report Type: Spontaneous
  Country: US (occurrence: US)
  Receive Date: 20210422
  Receipt Date: 20210422
  Transmission Date: 20210717
  Serious: Yes (Hospitalization)
  Sender: FDA-Public Use
  Company Number: None

PATIENT
  Sex: Male

DRUGS (2)
  1. DEFERASIROX. [Suspect]
     Active Substance: DEFERASIROX
     Indication: APLASIA
     Route: 048
     Dates: start: 20210322
  2. PREDNISONE. [Concomitant]
     Active Substance: PREDNISONE
     Dates: start: 20100526

REACTIONS (1)
  - Surgery [None]
